FAERS Safety Report 8051478-6 (Version None)
Quarter: 2012Q1

REPORT INFORMATION
  Report Type: 
  Country: None (occurrence: None)
  Receive Date: 20120117
  Receipt Date: 20120106
  Transmission Date: 20120608
  Serious: Yes (Hospitalization)
  Sender: FDA-Public Use
  Company Number: US-ASTRAZENECA-2011SE68653

PATIENT
  Age: 59 Year
  Sex: Male
  Weight: 108.9 kg

DRUGS (6)
  1. URISSETTE K [Concomitant]
     Indication: NEPHROLITHIASIS
     Dosage: THREE TIMES A DAY
  2. FLEXERIL [Concomitant]
     Indication: BACK PAIN
     Dosage: PRN
  3. REQUIP [Concomitant]
     Indication: RESTLESS LEGS SYNDROME
  4. DEMEROL [Concomitant]
  5. NEXIUM [Suspect]
     Route: 048
  6. ZOMIG [Concomitant]
     Indication: HEADACHE

REACTIONS (7)
  - GASTROOESOPHAGEAL REFLUX DISEASE [None]
  - GASTROINTESTINAL DISORDER [None]
  - OESOPHAGEAL DISORDER [None]
  - CHOKING [None]
  - DRUG DOSE OMISSION [None]
  - DIVERTICULITIS [None]
  - VOMITING [None]
